FAERS Safety Report 21284869 (Version 2)
Quarter: 2022Q3

REPORT INFORMATION
  Report Type: Spontaneous
  Country: DE (occurrence: DE)
  Receive Date: 20220902
  Receipt Date: 20220906
  Transmission Date: 20221027
  Serious: No
  Sender: FDA-Public Use
  Company Number: DE-UCBSA-2022050413

PATIENT
  Age: 63 Year
  Sex: Male

DRUGS (1)
  1. NEUPRO [Suspect]
     Active Substance: ROTIGOTINE
     Indication: Parkinson^s disease
     Dosage: 4 MILLIGRAM, ONCE DAILY (QD)
     Route: 062

REACTIONS (4)
  - Therapeutic response unexpected [Unknown]
  - Drug ineffective [Unknown]
  - Product adhesion issue [Unknown]
  - Product storage error [Unknown]
